FAERS Safety Report 5283789-1 (Version None)
Quarter: 2007Q2

REPORT INFORMATION
  Report Type: 
  Country: None (occurrence: None)
  Receive Date: 20070402
  Receipt Date: 20070328
  Transmission Date: 20071010
  Serious: Yes (Hospitalization)
  Sender: FDA-Public Use
  Company Number: CA-ROXANE LABORATORIES, INC-2007-DE-01825GD

PATIENT
  Age: 36 Year
  Sex: Female

DRUGS (11)
  1. SERTRALINE [Suspect]
  2. ASPIRIN [Suspect]
  3. EPHEDRINE SUL CAP [Suspect]
  4. MEDROXYPROGESTERONE ACETATE [Suspect]
     Indication: CONTRACEPTION
     Route: 030
  5. ASCORBIC ACID [Concomitant]
  6. VITAMIN E [Concomitant]
  7. CAFFEINE [Concomitant]
     Dosage: 400 MG EVERY MORNING AND 200 MG AT LUNCH
  8. B COMPLEX VITAMIN MULTIPLE [Concomitant]
  9. CALCIUM [Concomitant]
  10. MAGNESIUM [Concomitant]
  11. DIPHENHYDRAMINE HCL [Concomitant]

REACTIONS (2)
  - HEPATOTOXICITY [None]
  - RHABDOMYOLYSIS [None]
